FAERS Safety Report 8611197-1 (Version None)
Quarter: 2012Q3

REPORT INFORMATION
  Report Type: 
  Country: None (occurrence: None)
  Receive Date: 20120822
  Receipt Date: 20120813
  Transmission Date: 20120928
  Serious: Yes (Other)
  Sender: FDA-Public Use
  Company Number: CN-ASTRAZENECA-2012SE58122

PATIENT
  Sex: Female
  Weight: 61 kg

DRUGS (1)
  1. ESOMEPRAZOLE MAGNESIUM [Suspect]
     Indication: GASTROOESOPHAGEAL REFLUX DISEASE
     Route: 048
     Dates: start: 20101123, end: 20101123

REACTIONS (5)
  - HYPERHIDROSIS [None]
  - PALPITATIONS [None]
  - NAUSEA [None]
  - DIZZINESS [None]
  - HYPERTENSION [None]
